FAERS Safety Report 9252898 (Version 2)
Quarter: 2014Q1

REPORT INFORMATION
  Report Type: Spontaneous
  Country: US (occurrence: None)
  Receive Date: 20130305
  Receipt Date: 20140306
  Transmission Date: 20141002
  Serious: Yes (Other)
  Sender: FDA-Public Use
  Company Number: 163-21880-12042387

PATIENT
  Age: 85 Year
  Sex: Female
  Weight: 78.02 kg

DRUGS (17)
  1. REVLIMID [Suspect]
     Indication: PLASMA CELL MYELOMA
     Dosage: 25 MG, 21 IN 21 D, PO
     Route: 048
     Dates: start: 20120220
  2. CLARITIN (LORATADINE) [Concomitant]
  3. COZAAR (LOSARTAN POTASSIUM) [Concomitant]
  4. DECADRON (DEXAMETHASONE) [Concomitant]
  5. PLAVIX (CLOPIDOGREL SULFATE) [Concomitant]
  6. SIMVASTATIN [Concomitant]
  7. ZOMETA (ZOLEDRONIC ACID) [Concomitant]
  8. ALPHA LIPOIC ACID (THIOCTIC ACID) [Concomitant]
  9. CALCIUM [Concomitant]
  10. IMMUNE HEALTH [Concomitant]
  11. L CARNITINE (LEVOCARNITINE HYDROCHLORIDE) [Concomitant]
  12. POTASSIUM [Concomitant]
  13. PROBIOTIC (BIFIDOBACTERIUM LACTIS) [Concomitant]
  14. VITAMIN D (ERGOCALCIFEROL) [Concomitant]
  15. LORATADINE [Concomitant]
  16. OMEPRAZOLE [Concomitant]
  17. CALCIUM PLUS VITAMIN D (CALCIUM D3 ^STADA^) [Concomitant]

REACTIONS (8)
  - Insomnia [None]
  - Tooth disorder [None]
  - Neuropathy peripheral [None]
  - Blood potassium decreased [None]
  - Dyspnoea [None]
  - Diarrhoea [None]
  - Pain in extremity [None]
  - Dyspnoea exertional [None]
